FAERS Safety Report 11023999 (Version 2)
Quarter: 2015Q2

REPORT INFORMATION
  Report Type: Spontaneous
  Country: US (occurrence: US)
  Receive Date: 20150413
  Receipt Date: 20150525
  Transmission Date: 20150821
  Serious: Yes (Hospitalization, Other)
  Sender: FDA-Public Use
  Company Number: US-JNJFOC-20080304384

PATIENT
  Age: 58 Year
  Sex: Female
  Weight: 76.2 kg

DRUGS (8)
  1. LEVAQUIN [Suspect]
     Active Substance: LEVOFLOXACIN
     Indication: CHRONIC OBSTRUCTIVE PULMONARY DISEASE
     Route: 048
     Dates: start: 20030225, end: 200303
  2. VAGIFEM [Concomitant]
     Active Substance: ESTRADIOL
     Route: 067
     Dates: start: 20030108
  3. AMITRIP [Concomitant]
     Active Substance: AMITRIPTYLINE HYDROCHLORIDE
     Route: 065
     Dates: start: 20030108
  4. KETOPROFEN. [Concomitant]
     Active Substance: KETOPROFEN
     Route: 065
     Dates: start: 20030827
  5. GUAIFEN [Concomitant]
     Route: 065
     Dates: start: 20031028
  6. PREMARIN [Concomitant]
     Active Substance: ESTROGENS, CONJUGATED
     Route: 065
     Dates: start: 20030108
  7. FUROSEMIDE. [Concomitant]
     Active Substance: FUROSEMIDE
     Route: 065
     Dates: start: 20030109
  8. HYZAAR [Concomitant]
     Active Substance: HYDROCHLOROTHIAZIDE\LOSARTAN POTASSIUM
     Indication: BLOOD PRESSURE
     Route: 065
     Dates: start: 20030131

REACTIONS (3)
  - Tendonitis [Recovered/Resolved]
  - Tendon rupture [Not Recovered/Not Resolved]
  - Tendon injury [Unknown]

NARRATIVE: CASE EVENT DATE: 200303
